FAERS Safety Report 7051449-2 (Version None)
Quarter: 2010Q4

REPORT INFORMATION
  Report Type: 
  Country: None (occurrence: None)
  Receive Date: 20101019
  Receipt Date: 20101015
  Transmission Date: 20110411
  Serious: Yes (Death, Other)
  Sender: FDA-Public Use
  Company Number: A0884874A

PATIENT
  Age: 89 Year
  Sex: Male
  Weight: 65.9 kg

DRUGS (1)
  1. SORIATANE [Suspect]
     Indication: PROPHYLAXIS
     Route: 048

REACTIONS (7)
  - DRUG INEFFECTIVE [None]
  - METASTATIC SQUAMOUS CELL CARCINOMA [None]
  - NECROSIS [None]
  - OFF LABEL USE [None]
  - RECURRENT CANCER [None]
  - WOUND NECROSIS [None]
  - WOUND SECRETION [None]
